FAERS Safety Report 9493346 (Version 3)
Quarter: 2013Q3

REPORT INFORMATION
  Report Type: Spontaneous
  Country: US (occurrence: US)
  Receive Date: 20130902
  Receipt Date: 20130926
  Transmission Date: 20140515
  Serious: Yes (Disabling)
  Sender: FDA-Public Use
  Company Number: US-009507513-1308USA014826

PATIENT
  Age: 74 Year
  Sex: Male
  Weight: 94.33 kg

DRUGS (4)
  1. JANUVIA [Suspect]
     Indication: DIABETES MELLITUS
     Dosage: 100 MG, QD
     Route: 048
     Dates: start: 20130628, end: 20130826
  2. METFORMIN [Concomitant]
  3. LIPITOR [Concomitant]
  4. GLYBURIDE [Concomitant]

REACTIONS (4)
  - Myalgia [Not Recovered/Not Resolved]
  - Arthritis [Not Recovered/Not Resolved]
  - Muscular weakness [Unknown]
  - Activities of daily living impaired [Unknown]
